FAERS Safety Report 20917957 (Version 1)
Quarter: 2022Q2

REPORT INFORMATION
  Report Type: Spontaneous
  Country: AU (occurrence: None)
  Receive Date: 20220606
  Receipt Date: 20220606
  Transmission Date: 20220721
  Serious: Yes (Other)
  Sender: FDA-Public Use
  Company Number: AU-MICRO LABS LIMITED-ML2022-02526

PATIENT
  Age: 41 Year
  Sex: Female

DRUGS (8)
  1. ATORVASTATIN [Suspect]
     Active Substance: ATORVASTATIN
  2. BENSERAZIDE HYDROCHLORIDE\LEVODOPA [Suspect]
     Active Substance: BENSERAZIDE HYDROCHLORIDE\LEVODOPA
     Indication: Dystonia
  3. WARFARIN [Suspect]
     Active Substance: WARFARIN
  4. METOPROLOL [Suspect]
     Active Substance: METOPROLOL
  5. DESVENLAFAXINE [Suspect]
     Active Substance: DESVENLAFAXINE
  6. ALPRAZOLAM [Suspect]
     Active Substance: ALPRAZOLAM
  7. AGOMELATINE [Suspect]
     Active Substance: AGOMELATINE
  8. LEVONORGESTREL [Suspect]
     Active Substance: LEVONORGESTREL

REACTIONS (1)
  - Colitis microscopic [Recovered/Resolved]
